FAERS Safety Report 6584942-7 (Version None)
Quarter: 2010Q1

REPORT INFORMATION
  Report Type: 
  Country: None (occurrence: None)
  Receive Date: 20100217
  Receipt Date: 20100211
  Transmission Date: 20100710
  Serious: Yes (Disabling)
  Sender: FDA-Public Use
  Company Number: DE-SANOFI-AVENTIS-2010SA004566

PATIENT
  Age: 72 Year
  Sex: Female
  Weight: 70 kg

DRUGS (6)
  1. MULTAQ [Suspect]
     Indication: ATRIAL FIBRILLATION
     Route: 048
     Dates: start: 20100112, end: 20100125
  2. OLMETEC [Concomitant]
     Indication: HYPERTENSION
     Route: 048
     Dates: start: 20080401
  3. BISOPROLOL [Concomitant]
     Indication: HYPERTENSION
     Route: 048
     Dates: start: 20091101
  4. BISOPROLOL [Concomitant]
     Indication: ARRHYTHMIA
     Route: 048
     Dates: start: 20091101
  5. MARCUPHEN [Concomitant]
     Indication: ATRIAL FIBRILLATION
     Dosage: DOSE BASED ON INR LEVEL
     Route: 065
     Dates: start: 20091001
  6. BERLTHYROX [Concomitant]
     Indication: SECONDARY HYPOTHYROIDISM
     Route: 048
     Dates: start: 20040101

REACTIONS (4)
  - ARTHRALGIA [None]
  - CONDITION AGGRAVATED [None]
  - MOBILITY DECREASED [None]
  - POLYARTHRITIS [None]
